FAERS Safety Report 4547262-8 (Version None)
Quarter: 2005Q1

REPORT INFORMATION
  Report Type: 
  Country: None (occurrence: None)
  Receive Date: 20050107
  Receipt Date: 20030605
  Transmission Date: 20050727
  Serious: Yes (Hospitalization, Disabling, Other)
  Sender: FDA-Public Use
  Company Number: US-MERCK-0306USA00766

PATIENT
  Age: 67 Year
  Sex: Female

DRUGS (10)
  1. HUMULIN [Concomitant]
     Route: 065
     Dates: start: 20000101
  2. PLAVIX [Suspect]
     Route: 065
     Dates: start: 20000101
  3. GLUCOTROL XL [Concomitant]
     Route: 065
     Dates: start: 20000101
  4. EVISTA [Concomitant]
     Route: 065
     Dates: start: 20000101
  5. AMITRIPTYLINE HYDROCHLORIDE [Concomitant]
     Route: 065
     Dates: start: 20000101
  6. VIOXX [Suspect]
     Indication: ARTHRALGIA
     Route: 048
     Dates: start: 20000101
  7. VIOXX [Suspect]
     Route: 065
  8. CAPTOPRIL MSD [Concomitant]
     Route: 048
     Dates: start: 20000101
  9. SYNTHROID [Concomitant]
     Route: 065
     Dates: start: 20000101
  10. PRILOSEC [Concomitant]
     Route: 048
     Dates: start: 20000101

REACTIONS (60)
  - ABDOMINAL PAIN [None]
  - ADVERSE EVENT [None]
  - AMYOTROPHY [None]
  - ANAEMIA [None]
  - ANGINA PECTORIS [None]
  - ARTHRALGIA [None]
  - ARTHRITIS [None]
  - ATHEROSCLEROSIS [None]
  - BURSITIS [None]
  - CAROTID ARTERY STENOSIS [None]
  - CEREBRAL ARTERY STENOSIS [None]
  - CEREBRAL INFARCTION [None]
  - CEREBROVASCULAR ACCIDENT [None]
  - CEREBROVASCULAR DISORDER [None]
  - CHONDROMALACIA [None]
  - COAGULOPATHY [None]
  - CONSTIPATION [None]
  - CONTUSION [None]
  - CONVULSION [None]
  - CORONARY ARTERY DISEASE [None]
  - CREPITATIONS [None]
  - DIABETES MELLITUS INADEQUATE CONTROL [None]
  - DIABETIC COMPLICATION [None]
  - DIABETIC NEUROPATHY [None]
  - DIFFICULTY IN WALKING [None]
  - DIVERTICULUM [None]
  - DIZZINESS [None]
  - EYE INJURY [None]
  - FAECES DISCOLOURED [None]
  - FALL [None]
  - FATIGUE [None]
  - GASTRITIS [None]
  - GASTROINTESTINAL HAEMORRHAGE [None]
  - HAEMORRHOIDAL HAEMORRHAGE [None]
  - HAND FRACTURE [None]
  - HYPERTENSION [None]
  - HYPOTENSION [None]
  - INSULIN RESISTANCE [None]
  - JOINT DISLOCATION [None]
  - JOINT SPRAIN [None]
  - LACUNAR INFARCTION [None]
  - LEUKOPENIA [None]
  - LIGAMENT SPRAIN [None]
  - LUMBAR RADICULOPATHY [None]
  - MENISCUS LESION [None]
  - MENTAL STATUS CHANGES [None]
  - MUSCLE SPASMS [None]
  - MYELODYSPLASTIC SYNDROME [None]
  - NOCTURIA [None]
  - OSTEOARTHRITIS [None]
  - PAIN [None]
  - PERONEAL NERVE INJURY [None]
  - PHARYNGITIS [None]
  - RADICULOPATHY [None]
  - SUBCUTANEOUS ABSCESS [None]
  - SYNCOPE [None]
  - TENDONITIS [None]
  - THROMBOCYTOPENIA [None]
  - UPPER RESPIRATORY TRACT INFECTION [None]
  - VISUAL ACUITY REDUCED [None]
